FAERS Safety Report 4657375-8 (Version None)
Quarter: 2005Q2

REPORT INFORMATION
  Report Type: 
  Country: None (occurrence: None)
  Receive Date: 20050405
  Receipt Date: 20040802
  Transmission Date: 20051028
  Serious: Yes (Disabling)
  Sender: FDA-Public Use
  Company Number: 2004038704

PATIENT
  Age: 20 Year
  Sex: Female

DRUGS (11)
  1. GEODON [Suspect]
     Indication: BIPOLAR DISORDER
     Dosage: 120 MG (60 MG, 2 IN 1 D), ORAL
     Route: 048
     Dates: start: 20011218, end: 20040211
  2. OLANZAPINE (OLANZAPINE) [Suspect]
     Indication: ILL-DEFINED DISORDER
     Dosage: 5 MG (1 IN 1 D)
     Dates: start: 20040211
  3. BUPROPION HYDROCHLORIDE [Concomitant]
  4. BENZTROPINE MESYLATE [Concomitant]
  5. ALL OTHER THERAPEUTIC PRODUCTS (ALL OTHER THERAPEUTIC PRODUCTS) [Concomitant]
  6. LORAZEPAM [Concomitant]
  7. LITHIUM CARBONATE [Concomitant]
  8. SERTRALINE HCL [Concomitant]
  9. ZOLPIDEM TARTRATE [Concomitant]
  10. TEMAZEPAM [Concomitant]
  11. CODEINE SUL TAB [Concomitant]

REACTIONS (4)
  - HALLUCINATION, VISUAL [None]
  - INSOMNIA [None]
  - MUSCULOSKELETAL PAIN [None]
  - MUSCULOSKELETAL STIFFNESS [None]
